FAERS Safety Report 21200263 (Version 1)
Quarter: 2022Q3

REPORT INFORMATION
  Report Type: Report from Study
  Country: FR (occurrence: FR)
  Receive Date: 20220811
  Receipt Date: 20220811
  Transmission Date: 20221027
  Serious: Yes (Other)
  Sender: FDA-Public Use
  Company Number: FR-MYLANLABS-2022M1084881

PATIENT
  Sex: Female

DRUGS (2)
  1. MITOXANTRONE [Suspect]
     Active Substance: MITOXANTRONE HYDROCHLORIDE
     Indication: Relapsing-remitting multiple sclerosis
     Dosage: 20 MILLIGRAM, MONTHLY
     Route: 042
  2. METHYLPREDNISOLONE [Concomitant]
     Active Substance: METHYLPREDNISOLONE
     Indication: Relapsing-remitting multiple sclerosis
     Dosage: 1 GRAM, MONTHLY
     Route: 042

REACTIONS (1)
  - Anogenital warts [Unknown]
